FAERS Safety Report 8349296 (Version 2)
Quarter: 2013Q1

REPORT INFORMATION
  Report Type: Spontaneous
  Country: US (occurrence: US)
  Receive Date: 20120123
  Receipt Date: 20130327
  Transmission Date: 20140127
  Serious: Yes (Hospitalization)
  Sender: FDA-Public Use
  Company Number: US-GLAXOSMITHKLINE-A0849285A

PATIENT
  Age: 51 Year
  Sex: Male

DRUGS (1)
  1. AVANDIA [Suspect]
     Indication: DIABETES MELLITUS
     Dosage: 4MG PER DAY
     Route: 048
     Dates: start: 2004, end: 2007

REACTIONS (7)
  - Cardiac failure congestive [Not Recovered/Not Resolved]
  - Venous insufficiency [Unknown]
  - Ejection fraction decreased [Unknown]
  - Arterial occlusive disease [Unknown]
  - Pain [Unknown]
  - Weight increased [Unknown]
  - Catheterisation cardiac [Unknown]
